FAERS Safety Report 25240935 (Version 4)
Quarter: 2025Q4

REPORT INFORMATION
  Report Type: Report from Study
  Country: US (occurrence: None)
  Receive Date: 20250425
  Receipt Date: 20251228
  Transmission Date: 20260118
  Serious: Yes (Other)
  Sender: UCB
  Company Number: US-UCBSA-2025024456

PATIENT
  Weight: 81.088 kg

DRUGS (13)
  1. BIMEKIZUMAB [Suspect]
     Active Substance: BIMEKIZUMAB
     Indication: Psoriatic arthropathy
     Dosage: 320 MILLIGRAM, EV 4 WEEKS
  2. BIMEKIZUMAB [Suspect]
     Active Substance: BIMEKIZUMAB
     Indication: Psoriasis
     Dosage: 320 MILLIGRAM, EV 4 WEEKS
  3. BIMEKIZUMAB [Suspect]
     Active Substance: BIMEKIZUMAB
     Dosage: 320 MILLIGRAM, EV 4 WEEKS
  4. VITAMIN D3 [Concomitant]
     Active Substance: CHOLECALCIFEROL
     Indication: Product used for unknown indication
     Dosage: 250 MICROGRAM
  5. OTEZLA, [Concomitant]
     Indication: Psoriasis
  6. ICY HOT [Concomitant]
     Active Substance: LIDOCAINE\MENTHOL
     Indication: Product used for unknown indication
     Dosage: 29%-7.6%
  7. VOLTAREN ARTHRITIS PAIN, [Concomitant]
     Indication: Product used for unknown indication
  8. VITAMINS [Concomitant]
     Active Substance: VITAMINS
     Indication: Product used for unknown indication
  9. DESONIDE [Concomitant]
     Active Substance: DESONIDE
     Indication: Product used for unknown indication
     Dosage: 0.05 % CREAM
  10. CLOBETASOL [Concomitant]
     Active Substance: CLOBETASOL
     Indication: Product used for unknown indication
     Dosage: EMOLLIENT
  11. ALLOPURINOL [Concomitant]
     Active Substance: ALLOPURINOL
     Indication: Product used for unknown indication
     Dosage: 300 MILLIGRAM
  12. AMLODIPINE BESYLATE [Concomitant]
     Active Substance: AMLODIPINE BESYLATE
     Indication: Product used for unknown indication
     Dosage: 5 MILLIGRAM
  13. VITAMIN B12 [Concomitant]
     Active Substance: CYANOCOBALAMIN
     Indication: Product used for unknown indication
     Dosage: 500 MICROGRAM

REACTIONS (8)
  - Psoriatic arthropathy [Unknown]
  - Psoriasis [Unknown]
  - Pain [Unknown]
  - Pyrexia [Unknown]
  - Dermatitis acneiform [Unknown]
  - Incorrect dose administered [Unknown]
  - Device issue [Unknown]
  - Therapeutic product effect incomplete [Unknown]
